FAERS Safety Report 10906966 (Version 1)
Quarter: 2015Q1

REPORT INFORMATION
  Report Type: Spontaneous
  Country: US (occurrence: None)
  Receive Date: 20150309
  Receipt Date: 20150309
  Transmission Date: 20150721
  Serious: Yes (Hospitalization)
  Sender: FDA-Public Use
  Company Number: None

PATIENT
  Age: 67 Year
  Sex: Male
  Weight: 83.1 kg

DRUGS (14)
  1. ATENOLOL. [Concomitant]
     Active Substance: ATENOLOL
  2. ALBUTEROL. [Concomitant]
     Active Substance: ALBUTEROL
  3. ACETAMINOPHEN-OXYCODONE [Concomitant]
  4. ROPINIROLE. [Concomitant]
     Active Substance: ROPINIROLE
  5. BUPROPION [Concomitant]
     Active Substance: BUPROPION
  6. BUSPIRONE [Concomitant]
     Active Substance: BUSPIRONE HYDROCHLORIDE
  7. CARBOPLATIN. [Suspect]
     Active Substance: CARBOPLATIN
     Indication: LARYNGEAL CANCER
     Route: 042
     Dates: start: 20150218, end: 20150218
  8. DOCETAXEL. [Suspect]
     Active Substance: DOCETAXEL
     Indication: LARYNGEAL CANCER
     Route: 042
     Dates: start: 20150218, end: 20150218
  9. GLIMEPIRIDE. [Concomitant]
     Active Substance: GLIMEPIRIDE
  10. ALPRAZOLAM. [Concomitant]
     Active Substance: ALPRAZOLAM
  11. PROMETHAZINE [Concomitant]
     Active Substance: PROMETHAZINE\PROMETHAZINE HYDROCHLORIDE
  12. FENTANYL. [Concomitant]
     Active Substance: FENTANYL
  13. ONDANSETRON [Concomitant]
     Active Substance: ONDANSETRON
  14. ATORVASTATIN [Concomitant]
     Active Substance: ATORVASTATIN

REACTIONS (8)
  - Confusional state [None]
  - Hypercapnia [None]
  - Liver function test abnormal [None]
  - Respiratory failure [None]
  - Pneumonia aspiration [None]
  - Mental status changes [None]
  - Pyrexia [None]
  - Dyspnoea [None]

NARRATIVE: CASE EVENT DATE: 20150301
